FAERS Safety Report 9422898 (Version 2)
Quarter: 2013Q4

REPORT INFORMATION
  Report Type: Report from Study
  Country: US (occurrence: US)
  Receive Date: 20130726
  Receipt Date: 20131003
  Transmission Date: 20140711
  Serious: Yes (Hospitalization)
  Sender: FDA-Public Use
  Company Number: US-ACTELION-A-NJ2013-80203

PATIENT
  Age: 58 Year
  Sex: Female

DRUGS (3)
  1. VELETRI [Suspect]
     Indication: PULMONARY ARTERIAL HYPERTENSION
     Dosage: 31.7 NG/KG, PER MIN
     Route: 042
     Dates: start: 20100116
  2. VELETRI [Suspect]
     Dosage: 21 NG/KG, PER MIN
     Route: 042
     Dates: start: 20100116
  3. TRACLEER [Suspect]
     Indication: PULMONARY ARTERIAL HYPERTENSION
     Dosage: UNK
     Route: 048

REACTIONS (5)
  - Catheter site infection [Recovered/Resolved]
  - Bacterial infection [Recovered/Resolved]
  - Device related infection [Recovering/Resolving]
  - Staphylococcus test positive [Recovering/Resolving]
  - Catheter site swelling [Recovering/Resolving]
